FAERS Safety Report 11592727 (Version 3)
Quarter: 2015Q4

REPORT INFORMATION
  Report Type: Spontaneous
  Country: JP (occurrence: JP)
  Receive Date: 20151005
  Receipt Date: 20151106
  Transmission Date: 20160304
  Serious: Yes (Life-Threatening, Hospitalization, Other)
  Sender: FDA-Public Use
  Company Number: JP-PFIZER INC-2015323485

PATIENT
  Age: 78 Year
  Sex: Female

DRUGS (6)
  1. FUROSEMIDE. [Concomitant]
     Active Substance: FUROSEMIDE
     Dosage: UNK
  2. CANDESARTAN [Concomitant]
     Active Substance: CANDESARTAN
     Dosage: UNK
  3. MOHRUS [Concomitant]
     Active Substance: KETOPROFEN
     Dosage: UNK
     Dates: start: 20150601
  4. REBAMIPIDE [Concomitant]
     Active Substance: REBAMIPIDE
     Indication: MUSCULOSKELETAL PAIN
     Dosage: UNK
     Route: 048
  5. CELECOX [Suspect]
     Active Substance: CELECOXIB
     Dosage: 200 MG, 1X/DAY
     Route: 048
     Dates: start: 20150911, end: 20151016
  6. SELARA [Concomitant]
     Active Substance: EPLERENONE
     Dosage: UNK

REACTIONS (3)
  - Vomiting [Recovered/Resolved]
  - Loss of consciousness [Recovered/Resolved]
  - Anaphylactic reaction [Recovered/Resolved]

NARRATIVE: CASE EVENT DATE: 20150916
